FAERS Safety Report 23447383 (Version 1)
Quarter: 2024Q1

REPORT INFORMATION
  Report Type: Spontaneous
  Country: JP (occurrence: JP)
  Receive Date: 20240126
  Receipt Date: 20240126
  Transmission Date: 20240410
  Serious: Yes (Hospitalization)
  Sender: FDA-Public Use
  Company Number: JP-TEVA-VS-3148079

PATIENT
  Age: 57 Year
  Sex: Female

DRUGS (5)
  1. PREDNISOLONE [Suspect]
     Active Substance: PREDNISOLONE
     Indication: Lymphoma
     Dosage: CHEMOTHERAPY WAS DELIVERED IN CYCLES OF 21 DAYS PER CYCLE
     Route: 065
  2. CYCLOPHOSPHAMIDE [Suspect]
     Active Substance: CYCLOPHOSPHAMIDE
     Indication: Lymphoma
     Dosage: CHEMOTHERAPY WAS DELIVERED IN CYCLES OF 21 DAYS PER CYCLE
     Route: 065
  3. RITUXIMAB [Suspect]
     Active Substance: RITUXIMAB
     Indication: Lymphoma
     Dosage: CHEMOTHERAPY WAS DELIVERED IN CYCLES OF 21 DAYS PER CYCLE
     Route: 065
  4. VINCRISTINE [Suspect]
     Active Substance: VINCRISTINE
     Indication: Lymphoma
     Dosage: CHEMOTHERAPY WAS DELIVERED IN CYCLES OF 21 DAYS PER CYCLE
     Route: 065
  5. DOXORUBICIN [Suspect]
     Active Substance: DOXORUBICIN
     Indication: Lymphoma
     Dosage: CHEMOTHERAPY WAS DELIVERED IN CYCLES OF 21 DAYS PER CYCLE
     Route: 065

REACTIONS (2)
  - Hepatitis E [Recovered/Resolved]
  - Liver injury [Recovered/Resolved]
